FAERS Safety Report 13083412 (Version 1)
Quarter: 2017Q1

REPORT INFORMATION
  Report Type: Spontaneous
  Country: GB (occurrence: GB)
  Receive Date: 20170104
  Receipt Date: 20170104
  Transmission Date: 20170428
  Serious: Yes (Other)
  Sender: FDA-Public Use
  Company Number: GB-SUN PHARMACEUTICAL INDUSTRIES LTD-2016R1-111209

PATIENT
  Age: 45 Year
  Sex: Female

DRUGS (1)
  1. IBUPROFEN. [Suspect]
     Active Substance: IBUPROFEN
     Indication: NASOPHARYNGITIS
     Route: 065

REACTIONS (5)
  - Gastric haemorrhage [Unknown]
  - Dehydration [Unknown]
  - Off label use [Unknown]
  - Faeces discoloured [Unknown]
  - Anaemia [Unknown]
